FAERS Safety Report 8515223-X (Version None)
Quarter: 2012Q3

REPORT INFORMATION
  Report Type: 
  Country: None (occurrence: None)
  Receive Date: 20120717
  Receipt Date: 20120713
  Transmission Date: 20120928
  Serious: Yes (Death)
  Sender: FDA-Public Use
  Company Number: US-BRISTOL-MYERS SQUIBB COMPANY-16766768

PATIENT
  Age: 70 Year
  Sex: Female

DRUGS (1)
  1. ABILIFY [Suspect]
     Dosage: A FEW MONTHS AGO

REACTIONS (3)
  - BREAST CANCER FEMALE [None]
  - NEOPLASM MALIGNANT [None]
  - NEOPLASM PROGRESSION [None]
